FAERS Safety Report 7582736-7 (Version None)
Quarter: 2011Q2

REPORT INFORMATION
  Report Type: 
  Country: None (occurrence: None)
  Receive Date: 20110630
  Receipt Date: 20110620
  Transmission Date: 20111010
  Serious: Yes (Hospitalization)
  Sender: FDA-Public Use
  Company Number: JP-JNJFOC-20110407014

PATIENT
  Age: 45 Year
  Sex: Male
  Weight: 60 kg

DRUGS (17)
  1. REMICADE [Suspect]
     Route: 042
     Dates: start: 20101105
  2. PREDNISOLONE [Concomitant]
     Indication: COLITIS ULCERATIVE
     Route: 048
     Dates: end: 20101115
  3. PREDNISOLONE [Concomitant]
     Route: 048
     Dates: start: 20110502, end: 20110505
  4. PREDNISOLONE [Concomitant]
     Route: 048
     Dates: start: 20110422, end: 20110501
  5. AMARYL [Concomitant]
     Route: 048
     Dates: end: 20110110
  6. PREDNISOLONE [Concomitant]
     Route: 048
     Dates: start: 20101201, end: 20101213
  7. FAMOTIDINE [Concomitant]
     Indication: PROPHYLAXIS
     Route: 048
     Dates: start: 20110111
  8. PREDNISOLONE [Concomitant]
     Route: 048
     Dates: start: 20110512, end: 20110602
  9. PREDNISOLONE [Concomitant]
     Route: 048
     Dates: start: 20101214, end: 20101227
  10. FAMOTIDINE [Concomitant]
     Route: 048
     Dates: end: 20110110
  11. REMICADE [Suspect]
     Route: 042
     Dates: start: 20101214
  12. AMARYL [Concomitant]
     Indication: DIABETES MELLITUS
     Route: 048
     Dates: start: 20110111
  13. REMICADE [Suspect]
     Indication: COLITIS ULCERATIVE
     Route: 042
     Dates: start: 20110222
  14. REMICADE [Suspect]
     Route: 042
     Dates: start: 20101116
  15. PENTASA [Concomitant]
     Indication: COLITIS ULCERATIVE
     Route: 048
  16. PREDNISOLONE [Concomitant]
     Route: 048
     Dates: start: 20101116, end: 20101130
  17. PREDNISOLONE [Concomitant]
     Route: 048
     Dates: start: 20110506, end: 20110511

REACTIONS (1)
  - MONONEUROPATHY MULTIPLEX [None]
